FAERS Safety Report 13711426 (Version 1)
Quarter: 2017Q3

REPORT INFORMATION
  Report Type: Spontaneous
  Country: US (occurrence: US)
  Receive Date: 20170701
  Receipt Date: 20170701
  Transmission Date: 20171127
  Serious: Yes (Disabling)
  Sender: FDA-Public Use
  Company Number: None

PATIENT
  Age: 97 Year
  Sex: Male
  Weight: 58.95 kg

DRUGS (8)
  1. SYMBICORT [Concomitant]
     Active Substance: BUDESONIDE\FORMOTEROL FUMARATE DIHYDRATE
  2. ALBUTERAL [Concomitant]
     Active Substance: ALBUTEROL
  3. LEVOFLOXACIN. [Suspect]
     Active Substance: LEVOFLOXACIN
     Indication: PNEUMONIA
     Dosage: ?          QUANTITY:7 TABLET(S);?
     Route: 048
     Dates: start: 20160206, end: 20160212
  4. FERROUS SULFATE. [Concomitant]
     Active Substance: FERROUS SULFATE
  5. BABY ASPIRIN [Concomitant]
     Active Substance: ASPIRIN
  6. LEVOFLOXACIN. [Suspect]
     Active Substance: LEVOFLOXACIN
     Indication: URINARY TRACT INFECTION
     Dosage: ?          QUANTITY:7 TABLET(S);?
     Route: 048
     Dates: start: 20160206, end: 20160212
  7. CITRICAL [Concomitant]
     Active Substance: CALCIUM CITRATE
  8. AGE 65 AND OVER VITAMINS [Concomitant]

REACTIONS (8)
  - Tongue disorder [None]
  - Finger deformity [None]
  - Musculoskeletal pain [None]
  - Speech disorder [None]
  - Dysgeusia [None]
  - Joint stiffness [None]
  - Neck pain [None]
  - Mastication disorder [None]

NARRATIVE: CASE EVENT DATE: 20160210
